FAERS Safety Report 14066979 (Version 2)
Quarter: 2018Q3

REPORT INFORMATION
  Report Type: Spontaneous
  Country: JP (occurrence: JP)
  Receive Date: 20171009
  Receipt Date: 20180912
  Transmission Date: 20181010
  Serious: Yes (Other)
  Sender: FDA-Public Use
  Company Number: JP-SA-2017SA183961

PATIENT
  Age: 63 Year
  Sex: Male

DRUGS (3)
  1. ELPLAT [Suspect]
     Active Substance: OXALIPLATIN
     Indication: GASTRIC CANCER
     Dosage: UNK UNK, QD
     Route: 041
  2. ELPLAT [Suspect]
     Active Substance: OXALIPLATIN
     Dosage: UNK UNK,QD
     Route: 041
  3. XELODA [Concomitant]
     Active Substance: CAPECITABINE
     Dosage: UNK
     Route: 065

REACTIONS (3)
  - Ileus [Recovered/Resolved]
  - Hypoaesthesia [Unknown]
  - Neuropathy peripheral [Unknown]
